FAERS Safety Report 16728353 (Version 1)
Quarter: 2019Q3

REPORT INFORMATION
  Report Type: Spontaneous
  Country: NL (occurrence: NL)
  Receive Date: 20190822
  Receipt Date: 20190822
  Transmission Date: 20191005
  Serious: Yes (Hospitalization)
  Sender: FDA-Public Use
  Company Number: NL-SA-2019SA096143

PATIENT
  Age: 26 Year
  Sex: Female

DRUGS (7)
  1. DEXAMETHASONE SALT NOT SPECIFIED [Suspect]
     Active Substance: DEXAMETHASONE
     Indication: ANGIOEDEMA
     Dosage: 4 MG, DURING TWO SUCCESSIVE ACUTE ATTACKS OF ANGIOEDEMA
  2. CETIRIZINE HYDROCHLORIDE. [Suspect]
     Active Substance: CETIRIZINE HYDROCHLORIDE
     Indication: ANGIOEDEMA
     Dosage: 20 MG, BID, MAINTENANCE
  3. RANITIDINE HYDROCHLORIDE. [Suspect]
     Active Substance: RANITIDINE HYDROCHLORIDE
     Indication: ANGIOEDEMA
     Dosage: 300 MG, BID, MAINTENANCE THERAPY
  4. TRANEXAMIC ACID. [Concomitant]
     Active Substance: TRANEXAMIC ACID
     Indication: ANGIOEDEMA
     Dosage: 1000 MG, TID
  5. CLEMASTINE [Suspect]
     Active Substance: CLEMASTINE
     Indication: ANGIOEDEMA
     Dosage: 2 MG
     Route: 042
  6. DANAZOL. [Suspect]
     Active Substance: DANAZOL
     Indication: ANGIOEDEMA
     Dosage: 200 MG, QD
  7. EPINEPHRINE HYDROCHLORIDE. [Suspect]
     Active Substance: EPINEPHRINE HYDROCHLORIDE
     Indication: ANGIOEDEMA
     Dosage: 0.5 MG

REACTIONS (2)
  - Drug ineffective [Unknown]
  - Myopathy [Recovered/Resolved]
